FAERS Safety Report 20699927 (Version 1)
Quarter: 2022Q2

REPORT INFORMATION
  Report Type: Spontaneous
  Country: JP (occurrence: JP)
  Receive Date: 20220412
  Receipt Date: 20220412
  Transmission Date: 20220721
  Serious: Yes (Hospitalization)
  Sender: FDA-Public Use
  Company Number: JP-COLLEGIUM PHARMACEUTICAL, INC.-2022CGM00222

PATIENT
  Age: 86 Year
  Sex: Female

DRUGS (1)
  1. TAPENTADOL [Suspect]
     Active Substance: TAPENTADOL
     Dosage: 75 MG, 1X/DAY
     Route: 048

REACTIONS (2)
  - Hospitalisation [Unknown]
  - Product availability issue [Unknown]

NARRATIVE: CASE EVENT DATE: 20220330
